FAERS Safety Report 19468946 (Version 1)
Quarter: 2021Q2

REPORT INFORMATION
  Report Type: Report from Study
  Country: PK (occurrence: PK)
  Receive Date: 20210628
  Receipt Date: 20210628
  Transmission Date: 20210717
  Serious: Yes (Death)
  Sender: FDA-Public Use
  Company Number: NVSC2021PK144816

PATIENT
  Age: 62 Year
  Sex: Male
  Weight: 53 kg

DRUGS (1)
  1. TASIGNA [Suspect]
     Active Substance: NILOTINIB
     Indication: CHRONIC MYELOID LEUKAEMIA
     Dosage: 200 MG (2 CAPSULES BD)
     Route: 048
     Dates: start: 20150910, end: 20200818

REACTIONS (1)
  - Death [Fatal]

NARRATIVE: CASE EVENT DATE: 20201209
